FAERS Safety Report 9340444 (Version 2)
Quarter: 2014Q1

REPORT INFORMATION
  Report Type: Spontaneous
  Country: GB (occurrence: GB)
  Receive Date: 20130610
  Receipt Date: 20140130
  Transmission Date: 20141002
  Serious: Yes (Other)
  Sender: FDA-Public Use
  Company Number: GB-SANOFI-AVENTIS-2013SA055914

PATIENT
  Age: 74 Year
  Sex: Female

DRUGS (13)
  1. CLOPIDOGREL BISULFATE [Suspect]
     Indication: PRODUCT USED FOR UNKNOWN INDICATION
     Route: 065
  2. OMEPRAZOLE [Concomitant]
     Dosage: STOPPED BEFORE TAKING CLOPIDOGREL
  3. ASPIRIN [Concomitant]
  4. ATENOLOL [Concomitant]
  5. BENDROFLUMETHIAZIDE [Concomitant]
  6. CACIT VITAMINE D3 [Concomitant]
  7. FERROUS SULPHATE [Concomitant]
     Dates: start: 2012
  8. GLUCOPHAGE [Concomitant]
     Dates: start: 2012
  9. GLICLAZIDE [Concomitant]
     Dates: start: 1998
  10. GLICLAZIDE [Concomitant]
  11. LISINOPRIL [Concomitant]
  12. QUININE SULFATE [Concomitant]
     Dates: start: 2005
  13. SOLVAZINC [Concomitant]
     Dates: start: 2012

REACTIONS (2)
  - Throat irritation [Unknown]
  - Vomiting [Unknown]
